FAERS Safety Report 14281309 (Version 1)
Quarter: 2017Q4

REPORT INFORMATION
  Report Type: Spontaneous
  Country: US (occurrence: None)
  Receive Date: 20171213
  Receipt Date: 20171213
  Transmission Date: 20180321
  Serious: Yes (Other)
  Sender: FDA-Public Use
  Company Number: None

PATIENT
  Age: 68 Year
  Sex: Male
  Weight: 83.92 kg

DRUGS (5)
  1. WARFARIN [Suspect]
     Active Substance: WARFARIN
     Indication: ANTICOAGULANT THERAPY
     Route: 048
     Dates: start: 20140430, end: 20170903
  2. SENNOSIDES. [Concomitant]
     Active Substance: SENNOSIDES
  3. WARFARIN [Suspect]
     Active Substance: WARFARIN
     Indication: PULMONARY EMBOLISM
     Route: 048
     Dates: start: 20140430, end: 20170903
  4. ASPIRIN. [Concomitant]
     Active Substance: ASPIRIN
  5. ACETAMINOPHEN. [Concomitant]
     Active Substance: ACETAMINOPHEN

REACTIONS (6)
  - Atrial fibrillation [None]
  - Cardio-respiratory arrest [None]
  - Laryngospasm [None]
  - Sleep apnoea syndrome [None]
  - Fall [None]
  - Heart rate increased [None]

NARRATIVE: CASE EVENT DATE: 20170903
